FAERS Safety Report 24021550 (Version 1)
Quarter: 2024Q2

REPORT INFORMATION
  Report Type: Report from Study
  Country: US (occurrence: US)
  Receive Date: 20240627
  Receipt Date: 20240627
  Transmission Date: 20240717
  Serious: No
  Sender: FDA-Public Use
  Company Number: US-ROCHE-3534678

PATIENT
  Age: 86 Year
  Sex: Female
  Weight: 68.04 kg

DRUGS (11)
  1. VABYSMO [Suspect]
     Active Substance: FARICIMAB\FARICIMAB-SVOA
     Indication: Neovascular age-related macular degeneration
     Dosage: RECEIVES IN RIGHT EYE
     Route: 065
  2. VABYSMO [Suspect]
     Active Substance: FARICIMAB\FARICIMAB-SVOA
     Indication: Choroidal neovascularisation
     Dosage: RECEIVED IN RIGHT EYE, LAST DATE OF TREATMENT: 27/MAR/2024
     Route: 065
  3. EYLEA [Concomitant]
     Active Substance: AFLIBERCEPT
     Indication: Neovascular age-related macular degeneration
  4. LOSARTAN POTASSIUM [Concomitant]
     Active Substance: LOSARTAN POTASSIUM
     Indication: Hypertension
     Dosage: ORAL PILL 100 MG ONCE A DAY, TAKES AT NIGHT ;ONGOING: YES
  5. FUROSEMIDE [Concomitant]
     Active Substance: FUROSEMIDE
     Dosage: ORAL TABLET 20 MG ONCE A DAY
  6. CARVEDILOL [Concomitant]
     Active Substance: CARVEDILOL
     Dosage: ORAL PILL 25 MG TWICE A DAY, TAKES WITH MEALS ;ONGOING: YES
     Dates: start: 2020
  7. PANTOPRAZOLE SODIUM [Concomitant]
     Active Substance: PANTOPRAZOLE SODIUM
     Dosage: ORAL PILL 40 MG ONCE A DAY TAKES AT DINNER TIME ;ONGOING: YES
  8. LEVOTHYROXINE [Concomitant]
     Active Substance: LEVOTHYROXINE\LEVOTHYROXINE SODIUM
     Indication: Goitre
     Dosage: ORAL PILL 88 UG ONCE A DAY
  9. ELIQUIS [Concomitant]
     Active Substance: APIXABAN
     Dosage: ORAL TABLET 2.5 MG TWICE A DAY
     Dates: start: 2020
  10. MINERALS\VITAMINS [Concomitant]
     Active Substance: MINERALS\VITAMINS
     Dosage: ORAL PILL TWICE A DAY
  11. TYLENOL [Concomitant]
     Active Substance: ACETAMINOPHEN
     Indication: Headache
     Dosage: ORAL PILL 500 MG

REACTIONS (3)
  - Hypoacusis [Not Recovered/Not Resolved]
  - Visual impairment [Not Recovered/Not Resolved]
  - Off label use [Unknown]
